FAERS Safety Report 21197917 (Version 2)
Quarter: 2022Q3

REPORT INFORMATION
  Report Type: Spontaneous
  Country: US (occurrence: US)
  Receive Date: 20220810
  Receipt Date: 20220919
  Transmission Date: 20221026
  Serious: Yes (Other)
  Sender: FDA-Public Use
  Company Number: US-JNJFOC-20220811495

PATIENT
  Age: 68 Year
  Sex: Female
  Weight: 111.23 kg

DRUGS (2)
  1. TREMFYA [Suspect]
     Active Substance: GUSELKUMAB
     Indication: Psoriasis
     Route: 065
     Dates: start: 202111
  2. TREMFYA [Suspect]
     Active Substance: GUSELKUMAB

REACTIONS (4)
  - Kidney infection [Recovered/Resolved]
  - Product storage error [Unknown]
  - Product colour issue [Unknown]
  - Product dose omission issue [Unknown]
